FAERS Safety Report 11773844 (Version 2)
Quarter: 2016Q2

REPORT INFORMATION
  Report Type: Spontaneous
  Country: US (occurrence: US)
  Receive Date: 20151124
  Receipt Date: 20160406
  Transmission Date: 20160815
  Serious: No
  Sender: FDA-Public Use
  Company Number: US-TEVA-610691USA

PATIENT
  Age: 58 Year
  Sex: Female
  Weight: 81.72 kg

DRUGS (4)
  1. AZITHROMYCIN ANHYDROUS. [Concomitant]
     Active Substance: AZITHROMYCIN ANHYDROUS
  2. FLONASE [Concomitant]
     Active Substance: FLUTICASONE PROPIONATE
  3. PROAIR HFA [Suspect]
     Active Substance: ALBUTEROL SULFATE
     Indication: WHEEZING
     Dosage: AS NEEDED
     Route: 055
     Dates: start: 20151019
  4. MEDROL PAK [Concomitant]

REACTIONS (3)
  - Chest pain [Unknown]
  - Hypersensitivity [Unknown]
  - Oropharyngeal pain [Unknown]

NARRATIVE: CASE EVENT DATE: 20151019
